FAERS Safety Report 10423443 (Version 1)
Quarter: 2014Q3

REPORT INFORMATION
  Report Type: Spontaneous
  Country: US (occurrence: None)
  Receive Date: 20140722
  Receipt Date: 20140722
  Transmission Date: 20150326
  Serious: Yes (Other)
  Sender: FDA-Public Use
  Company Number: AEGR000392

PATIENT
  Age: 59 Year
  Sex: Female
  Weight: 78 kg

DRUGS (7)
  1. FISH OIL [Concomitant]
     Active Substance: FISH OIL
  2. BYSTOLIC [Concomitant]
     Active Substance: NEBIVOLOL HYDROCHLORIDE
  3. PLAVIX (CLOPIDOGREL BISULFATE) [Concomitant]
  4. VITAMIN E (TOCOPHERYL ACID SUCCINATE) [Concomitant]
  5. ASPIRIN (ACETYLSALICYLIC ACID) [Concomitant]
     Active Substance: ASPIRIN
  6. LEXAPRO [Concomitant]
     Active Substance: ESCITALOPRAM OXALATE
  7. JUXTAPID [Suspect]
     Active Substance: LOMITAPIDE MESYLATE
     Indication: TYPE IIA HYPERLIPIDAEMIA
     Route: 048
     Dates: start: 20140330, end: 20140428

REACTIONS (2)
  - Diarrhoea [None]
  - Abdominal discomfort [None]

NARRATIVE: CASE EVENT DATE: 2014
